FAERS Safety Report 4515642-2 (Version None)
Quarter: 2004Q4

REPORT INFORMATION
  Report Type: 
  Country: None (occurrence: None)
  Receive Date: 20041126
  Receipt Date: 20041115
  Transmission Date: 20050328
  Serious: Yes (Other)
  Sender: FDA-Public Use
  Company Number: 2004093110

PATIENT
  Age: 94 Year
  Sex: Female

DRUGS (2)
  1. ZOLOFT [Suspect]
     Indication: ILL-DEFINED DISORDER
     Dosage: 50 MG (50 MG, 1 IN 1 D)
  2. SEREPAX (OXAZEPAM) [Concomitant]

REACTIONS (8)
  - AMNESIA [None]
  - ANOREXIA [None]
  - APATHY [None]
  - COGNITIVE DETERIORATION [None]
  - FEELING ABNORMAL [None]
  - GENERAL PHYSICAL HEALTH DETERIORATION [None]
  - HIP SURGERY [None]
  - SEDATION [None]
